FAERS Safety Report 8154786-3 (Version None)
Quarter: 2012Q1

REPORT INFORMATION
  Report Type: 
  Country: None (occurrence: None)
  Receive Date: 20120221
  Receipt Date: 20120209
  Transmission Date: 20120608
  Serious: Yes (Hospitalization)
  Sender: FDA-Public Use
  Company Number: PHHY2012AU006045

PATIENT
  Sex: Male

DRUGS (3)
  1. RISPERIDONE [Concomitant]
     Indication: SCHIZOPHRENIA
     Dosage: 50 MG, EVERY TWO WEEKS
     Route: 030
  2. VALPROATE SODIUM [Concomitant]
     Indication: SCHIZOAFFECTIVE DISORDER
     Dosage: 500 MG, BID
     Route: 048
  3. CLOZARIL [Suspect]
     Indication: SCHIZOPHRENIA
     Dosage: 500 MG
     Dates: start: 20110110

REACTIONS (5)
  - ANTIPSYCHOTIC DRUG LEVEL BELOW THERAPEUTIC [None]
  - PSYCHOTIC DISORDER [None]
  - HALLUCINATION, AUDITORY [None]
  - ACCIDENTAL OVERDOSE [None]
  - ANTIPSYCHOTIC DRUG LEVEL INCREASED [None]
